FAERS Safety Report 10175951 (Version 2)
Quarter: 2014Q2

REPORT INFORMATION
  Report Type: Spontaneous
  Country: GB (occurrence: GB)
  Receive Date: 20140516
  Receipt Date: 20140523
  Transmission Date: 20141212
  Serious: Yes (Hospitalization, Other)
  Sender: FDA-Public Use
  Company Number: GB-ACCORD-023566

PATIENT
  Age: 20 Year
  Sex: Male
  Weight: 76 kg

DRUGS (12)
  1. METHOTREXATE [Suspect]
     Indication: OSTEOSARCOMA
     Dosage: DOSAGE TEXT-24 G
     Route: 042
     Dates: start: 20131202, end: 20140415
  2. MIFAMURTIDE [Suspect]
     Indication: OSTEOSARCOMA
     Dosage: WAS GIVEN 6 HOURS AFTER METHOTREXATE ON 15-APR-2014, 2 X 4 MG IN 1 WEEK
     Route: 042
     Dates: start: 20140317, end: 20140415
  3. ONDANSETRON [Concomitant]
  4. CALCIUM LEVOFOLINATE [Concomitant]
  5. GRANULOCYTE COLONY-STIMULATING FACTOR NOS [Concomitant]
  6. METOCLOPRAMIDE [Concomitant]
  7. DEXAMETHASONE [Concomitant]
  8. APREPITANT [Concomitant]
     Indication: OSTEOSARCOMA
     Dates: start: 201308
  9. SODIUM BICARBONATE [Concomitant]
  10. DOXORUBICIN [Concomitant]
  11. CISPLATIN [Concomitant]
     Indication: OSTEOSARCOMA
     Dates: start: 201308
  12. PARACETAMOL [Concomitant]

REACTIONS (3)
  - Medication error [Unknown]
  - Drug interaction [Recovered/Resolved]
  - Renal impairment [Recovering/Resolving]
